FAERS Safety Report 14494100 (Version 1)
Quarter: 2018Q1

REPORT INFORMATION
  Report Type: Spontaneous
  Country: FR (occurrence: FR)
  Receive Date: 20180206
  Receipt Date: 20180206
  Transmission Date: 20180509
  Serious: Yes (Other)
  Sender: FDA-Public Use
  Company Number: FR-ABBVIE-18K-056-2248332-00

PATIENT
  Age: 26 Year
  Sex: Female
  Weight: 68 kg

DRUGS (2)
  1. CRATAEGUS EXTRACT [Concomitant]
     Active Substance: HAWTHORN LEAF WITH FLOWER
     Indication: PRODUCT USED FOR UNKNOWN INDICATION
     Route: 048
  2. HUMIRA [Suspect]
     Active Substance: ADALIMUMAB
     Indication: PSORIASIS
     Route: 058
     Dates: start: 20170504, end: 20171028

REACTIONS (2)
  - Tachycardia [Recovered/Resolved]
  - Loss of consciousness [Recovered/Resolved]

NARRATIVE: CASE EVENT DATE: 20171029
